FAERS Safety Report 7648941-6 (Version None)
Quarter: 2011Q3

REPORT INFORMATION
  Report Type: 
  Country: None (occurrence: None)
  Receive Date: 20110801
  Receipt Date: 20110728
  Transmission Date: 20111222
  Serious: Yes (Death, Hospitalization, Other)
  Sender: FDA-Public Use
  Company Number: US-BRISTOL-MYERS SQUIBB COMPANY-15935166

PATIENT
  Age: 78 Year
  Sex: Male
  Weight: 90 kg

DRUGS (3)
  1. ERBITUX [Suspect]
     Indication: NON-SMALL CELL LUNG CANCER
     Dosage: LAST DOSE ON 12JUL2011 400MG/M2 IV OVER 120 MIN DAY1
     Route: 042
     Dates: start: 20110520
  2. TAXOL [Suspect]
     Indication: NON-SMALL CELL LUNG CANCER
     Dosage: 45MG/M2 IV DAYS 8,15,22,29,36,43
     Route: 042
     Dates: start: 20110520
  3. CARBOPLATIN [Suspect]
     Indication: NON-SMALL CELL LUNG CANCER
     Dosage: AUC 2 IV DAY 8,15,22,29,36,43
     Route: 042
     Dates: start: 20110520

REACTIONS (5)
  - WEIGHT DECREASED [None]
  - COMPLETED SUICIDE [None]
  - FATIGUE [None]
  - DYSPNOEA [None]
  - OESOPHAGITIS [None]
